FAERS Safety Report 5308445-2 (Version None)
Quarter: 2007Q2

REPORT INFORMATION
  Report Type: 
  Country: None (occurrence: None)
  Receive Date: 20070426
  Receipt Date: 20070417
  Transmission Date: 20071010
  Serious: Yes (Hospitalization)
  Sender: FDA-Public Use
  Company Number: BR-ROCHE-491599

PATIENT
  Age: 16 Year
  Sex: Male
  Weight: 60 kg

DRUGS (1)
  1. ISOTRETINOIN [Suspect]
     Indication: ACNE
     Route: 048
     Dates: start: 20070315, end: 20070315

REACTIONS (2)
  - ACTIVATED PARTIAL THROMBOPLASTIN TIME SHORTENED [None]
  - GASTROINTESTINAL HAEMORRHAGE [None]
